FAERS Safety Report 8410751 (Version 25)
Quarter: 2013Q1

REPORT INFORMATION
  Report Type: Report from Study
  Country: DK (occurrence: DK)
  Receive Date: 20120217
  Receipt Date: 20130114
  Transmission Date: 20140127
  Serious: Yes (Hospitalization, Other)
  Sender: FDA-Public Use
  Company Number: DK-BAXTER-2012BH004923

PATIENT
  Age: 78 Year
  Sex: Female
  Weight: 58 kg

DRUGS (33)
  1. SENDOXAN [Suspect]
     Indication: DIFFUSE LARGE B-CELL LYMPHOMA
     Dosage: 1320 MG, UNK
     Route: 042
     Dates: start: 20120109
  2. SENDOXAN [Suspect]
     Dosage: 1350 MG, UNK
     Route: 042
     Dates: start: 20120123
  3. SENDOXAN [Suspect]
     Dosage: 1275 MG, UNK
     Route: 042
     Dates: start: 20120213
  4. DOXORUBICIN HCL [Suspect]
     Indication: DIFFUSE LARGE B-CELL LYMPHOMA
     Dosage: 88 MG, UNK
     Route: 042
     Dates: start: 20120109
  5. DOXORUBICIN HCL [Suspect]
     Dosage: 90 MG, UNK
     Route: 042
     Dates: start: 20120123
  6. DOXORUBICIN HCL [Suspect]
     Dosage: 85 MG, UNK
     Route: 042
     Dates: start: 20120213
  7. PREDNISONE [Suspect]
     Indication: DIFFUSE LARGE B-CELL LYMPHOMA
     Dosage: 100 MG, UNK
     Route: 048
     Dates: start: 20120109
  8. PREDNISONE [Suspect]
     Dosage: 100 MG, UNK
     Route: 048
     Dates: start: 20120123
  9. PREDNISONE [Suspect]
     Dosage: 100 MG, UNK
     Route: 048
     Dates: start: 20120213
  10. PREDNISONE [Suspect]
     Dosage: 100 MG, UNK
     Route: 048
     Dates: start: 20120217
  11. PREDNISONE [Suspect]
     Dosage: 100 MG, UNK
     Route: 048
     Dates: start: 20120109
  12. PREDNISONE [Suspect]
     Route: 048
  13. PREDNISONE [Suspect]
     Route: 048
  14. PREDNISONE [Suspect]
     Route: 048
  15. VINCRISTINE [Suspect]
     Indication: DIFFUSE LARGE B-CELL LYMPHOMA
     Dosage: 2 MG, UNK
     Route: 042
     Dates: start: 20120109
  16. VINCRISTINE [Suspect]
     Dosage: 42 MG, UNK
     Route: 042
     Dates: start: 20120123
  17. VINCRISTINE [Suspect]
     Dosage: 2 MG
     Route: 042
     Dates: start: 20120213
  18. PEGFILGRASTIM [Suspect]
     Indication: DIFFUSE LARGE B-CELL LYMPHOMA
     Dosage: 6 MG, UNK
     Route: 058
     Dates: start: 20120110
  19. PEGFILGRASTIM [Suspect]
     Dosage: 6 MG, UNK
     Route: 058
     Dates: start: 20120128
  20. PEGFILGRASTIM [Suspect]
     Dosage: 6 MG, UNK
     Route: 058
     Dates: start: 20120214
  21. PEGFILGRASTIM [Suspect]
     Route: 058
     Dates: start: 20120124
  22. RITUXIMAB [Suspect]
     Indication: DIFFUSE LARGE B-CELL LYMPHOMA
     Dosage: 600 MG, UNK
     Route: 042
     Dates: start: 20120109
  23. RITUXIMAB [Suspect]
     Dosage: 700 MG, UNK
     Route: 042
     Dates: start: 20120123
  24. RITUXIMAB [Suspect]
     Dosage: 600 MG, UNK
     Route: 042
     Dates: start: 20120218
  25. PANTOPRAZOLE [Concomitant]
     Indication: DYSPEPSIA
     Dosage: 40 MG, UNK
     Route: 048
     Dates: start: 20120105
  26. TENORETIC [Concomitant]
     Indication: HYPERTENSION
     Dosage: 72.5 MG, UNK
     Route: 048
     Dates: start: 20111218
  27. SIMVASTATIN [Concomitant]
     Indication: BLOOD CHOLESTEROL INCREASED
     Dosage: 40 MG, UNK
     Route: 048
     Dates: start: 20100917
  28. SIMVASTATIN [Concomitant]
     Dosage: 40 MG, UNK
     Dates: start: 20110914
  29. SIMVASTATIN [Concomitant]
     Dosage: 15 MG, UNK
     Dates: start: 20111219
  30. MIRTAZAPINE [Concomitant]
     Indication: DEPRESSION
     Dosage: 15 MG, UNK
     Route: 048
     Dates: start: 20111219
  31. VENLAFAXINE HYDROCHLORIDE [Concomitant]
     Indication: DEPRESSION
     Dosage: 75 MG, UNK
     Route: 048
     Dates: start: 20120105
  32. CONTALGIN [Concomitant]
     Indication: PRODUCT USED FOR UNKNOWN INDICATION
     Dosage: 10 MG, UNK
     Route: 048
     Dates: start: 20111201
  33. CODALGIN [Concomitant]
     Indication: PRODUCT USED FOR UNKNOWN INDICATION
     Route: 048
     Dates: start: 20120107

REACTIONS (5)
  - Oral candidiasis [Recovered/Resolved]
  - Weight decreased [Recovered/Resolved]
  - Dizziness [Unknown]
  - Dehydration [Recovered/Resolved]
  - Oral candidiasis [Recovered/Resolved]
